FAERS Safety Report 12944852 (Version 5)
Quarter: 2017Q1

REPORT INFORMATION
  Report Type: Spontaneous
  Country: AU (occurrence: AU)
  Receive Date: 20161115
  Receipt Date: 20170324
  Transmission Date: 20170428
  Serious: Yes (Other)
  Sender: FDA-Public Use
  Company Number: AU-BAUSCH-BL-2016-025515

PATIENT
  Age: 8 Month
  Sex: Male

DRUGS (1)
  1. SOLONE [Suspect]
     Active Substance: PREDNISOLONE
     Indication: PRODUCT USED FOR UNKNOWN INDICATION
     Route: 063
     Dates: start: 2016

REACTIONS (36)
  - Laryngomalacia [Unknown]
  - Dehydration [Not Recovered/Not Resolved]
  - Motor developmental delay [Not Recovered/Not Resolved]
  - Bone disorder [Not Recovered/Not Resolved]
  - Dry eye [Not Recovered/Not Resolved]
  - Personality change [Unknown]
  - Cartilage injury [Not Recovered/Not Resolved]
  - Arthritis [Unknown]
  - Pigmentation disorder [Recovered/Resolved]
  - Skin discolouration [Not Recovered/Not Resolved]
  - Growth retardation [Not Recovered/Not Resolved]
  - Pain [Unknown]
  - Hair texture abnormal [Not Recovered/Not Resolved]
  - Irritability [Recovered/Resolved]
  - Affective disorder [Not Recovered/Not Resolved]
  - Stridor [Not Recovered/Not Resolved]
  - Delayed fontanelle closure [Not Recovered/Not Resolved]
  - Device breakage [Not Recovered/Not Resolved]
  - Crying [Not Recovered/Not Resolved]
  - Brain injury [Not Recovered/Not Resolved]
  - Mood altered [Not Recovered/Not Resolved]
  - Staring [Not Recovered/Not Resolved]
  - Joint crepitation [Not Recovered/Not Resolved]
  - Eye disorder [Not Recovered/Not Resolved]
  - Muscle spasms [Not Recovered/Not Resolved]
  - Skin texture abnormal [Not Recovered/Not Resolved]
  - Weight decreased [Not Recovered/Not Resolved]
  - Insomnia [Recovering/Resolving]
  - Arthropathy [Unknown]
  - Rash generalised [Not Recovered/Not Resolved]
  - Eye discharge [Not Recovered/Not Resolved]
  - Head titubation [Not Recovered/Not Resolved]
  - Alopecia [Recovered/Resolved]
  - Enamel anomaly [Not Recovered/Not Resolved]
  - Skin disorder [Not Recovered/Not Resolved]
  - Trismus [Not Recovered/Not Resolved]

NARRATIVE: CASE EVENT DATE: 2016
